FAERS Safety Report 24678398 (Version 2)
Quarter: 2024Q4

REPORT INFORMATION
  Report Type: Spontaneous
  Country: JP (occurrence: JP)
  Receive Date: 20241129
  Receipt Date: 20241207
  Transmission Date: 20250114
  Serious: Yes (Life-Threatening, Other)
  Sender: CSL BEHRING
  Company Number: JP-BEH-2024186602

PATIENT
  Age: 74 Year
  Sex: Female
  Weight: 46 kg

DRUGS (5)
  1. HIZENTRA [Suspect]
     Active Substance: HUMAN IMMUNOGLOBULIN G
     Indication: Chronic inflammatory demyelinating polyradiculoneuropathy
     Dosage: 4 BOTTLES, QD
     Route: 058
     Dates: start: 20221219
  2. MIRABEGRON [Concomitant]
     Active Substance: MIRABEGRON
     Dosage: UNK
     Route: 048
     Dates: start: 20221214
  3. PREDNISOLONE [Concomitant]
     Active Substance: PREDNISOLONE
     Dosage: UNK
     Route: 048
     Dates: start: 20221214
  4. ALENDRONATE [Concomitant]
     Active Substance: ALENDRONATE SODIUM
     Dosage: UNK
     Route: 048
     Dates: start: 20221214
  5. CYANOCOBALAMIN\PYRIDOXINE HYDROCHLORIDE\THIAMINE [Concomitant]
     Active Substance: CYANOCOBALAMIN\PYRIDOXINE HYDROCHLORIDE\THIAMINE
     Dosage: UNK
     Route: 048
     Dates: start: 20231010

REACTIONS (13)
  - HIV infection [Not Recovered/Not Resolved]
  - Suspected transmission of an infectious agent via product [Unknown]
  - Vitreous haemorrhage [Unknown]
  - Vitreous floaters [Unknown]
  - Retinal haemorrhage [Unknown]
  - Acquired immunodeficiency syndrome [Unknown]
  - Hepatitis B surface antibody positive [Unknown]
  - Hepatitis B core antibody positive [Unknown]
  - Oral candidiasis [Unknown]
  - Coating in mouth [Unknown]
  - Stomatitis [Unknown]
  - Cytomegalovirus infection [Unknown]
  - Epstein-Barr virus test positive [Unknown]

NARRATIVE: CASE EVENT DATE: 20240117
